FAERS Safety Report 19698216 (Version 1)
Quarter: 2021Q3

REPORT INFORMATION
  Report Type: Spontaneous
  Country: FR (occurrence: FR)
  Receive Date: 20210813
  Receipt Date: 20210813
  Transmission Date: 20211014
  Serious: Yes (Other)
  Sender: FDA-Public Use
  Company Number: FR-TEVA-2021-FR-1940869

PATIENT
  Age: 0 Year
  Sex: Male

DRUGS (2)
  1. LABETALOL (CHLORHYDRATE DE) [Suspect]
     Active Substance: LABETALOL HYDROCHLORIDE
     Indication: HYPERTENSION
     Route: 064
  2. NEBIVOLOL. [Suspect]
     Active Substance: NEBIVOLOL
     Route: 065

REACTIONS (1)
  - Sinus bradycardia [Not Recovered/Not Resolved]

NARRATIVE: CASE EVENT DATE: 20210715
